FAERS Safety Report 8342627-0 (Version None)
Quarter: 2012Q2

REPORT INFORMATION
  Report Type: 
  Country: None (occurrence: None)
  Receive Date: 20120508
  Receipt Date: 20120501
  Transmission Date: 20120825
  Serious: No
  Sender: FDA-Public Use
  Company Number: US-BIOGENIDEC-2012BI015495

PATIENT
  Age: 52 Year
  Sex: Female

DRUGS (2)
  1. NORTRIPTYLINE HCL [Concomitant]
     Indication: HEADACHE
     Route: 048
  2. TYSABRI [Suspect]
     Indication: MULTIPLE SCLEROSIS
     Route: 042
     Dates: start: 20120419

REACTIONS (4)
  - HEADACHE [None]
  - FALL [None]
  - PARAESTHESIA [None]
  - NAUSEA [None]
